FAERS Safety Report 7472276-8 (Version None)
Quarter: 2011Q1

REPORT INFORMATION
  Report Type: 
  Country: None (occurrence: None)
  Receive Date: 20110302
  Receipt Date: 20101101
  Transmission Date: 20110831
  Serious: Yes (Hospitalization, Other)
  Sender: FDA-Public Use
  Company Number: 163-21880-10081009

PATIENT
  Age: 77 Year
  Sex: Male

DRUGS (2)
  1. REVLIMID [Suspect]
     Indication: MULTIPLE MYELOMA
     Dosage: 10 MG, DAILY FOR 21 DAYS, Q 4 WEEKS, PO, 10 MG, FOR 21 DAYS EVERY 4 WEEKS, PO
     Route: 048
     Dates: start: 20090810
  2. REVLIMID [Suspect]
     Indication: MULTIPLE MYELOMA
     Dosage: 10 MG, DAILY FOR 21 DAYS, Q 4 WEEKS, PO, 10 MG, FOR 21 DAYS EVERY 4 WEEKS, PO
     Route: 048
     Dates: start: 20100207, end: 20101001

REACTIONS (2)
  - BACK PAIN [None]
  - COGNITIVE DISORDER [None]
